FAERS Safety Report 9106188 (Version 1)
Quarter: 2013Q1

REPORT INFORMATION
  Report Type: Spontaneous
  Country: US (occurrence: US)
  Receive Date: 20130221
  Receipt Date: 20130221
  Transmission Date: 20140127
  Serious: Yes (Other)
  Sender: FDA-Public Use
  Company Number: CHPA2013US003057

PATIENT
  Age: 82 Year
  Sex: Male

DRUGS (1)
  1. VOLTAREN GEL [Suspect]
     Indication: GOUT
     Dosage: UNK, UNK
     Route: 061
     Dates: start: 20120709, end: 201209

REACTIONS (14)
  - Thrombosis [Not Recovered/Not Resolved]
  - Escherichia infection [Recovered/Resolved]
  - Eye infection [Recovered/Resolved]
  - Pharyngitis [Recovered/Resolved]
  - Sinusitis [Recovered/Resolved]
  - Cystitis [Recovered/Resolved]
  - Asthenopia [Recovered/Resolved]
  - Dyspnoea [Recovered/Resolved]
  - Fatigue [Recovered/Resolved]
  - Abdominal pain upper [Recovered/Resolved]
  - Abdominal distension [Recovered/Resolved]
  - Pain [Recovered/Resolved]
  - Therapeutic response unexpected [Unknown]
  - Off label use [Unknown]
